FAERS Safety Report 9410031 (Version 1)
Quarter: 2013Q3

REPORT INFORMATION
  Report Type: Spontaneous
  Country: US (occurrence: US)
  Receive Date: 20130719
  Receipt Date: 20130719
  Transmission Date: 20140515
  Serious: Yes (Other)
  Sender: FDA-Public Use
  Company Number: US-PFIZER INC-2013211700

PATIENT
  Age: 47 Year
  Sex: Female
  Weight: 79.37 kg

DRUGS (1)
  1. PRISTIQ [Suspect]
     Indication: DEPRESSION
     Dosage: 50 MG, DAILY
     Dates: start: 2010, end: 20130715

REACTIONS (1)
  - Cardiac murmur [Not Recovered/Not Resolved]
